FAERS Safety Report 14025840 (Version 4)
Quarter: 2018Q4

REPORT INFORMATION
  Report Type: Report from Study
  Country: TW (occurrence: TW)
  Receive Date: 20170929
  Receipt Date: 20181213
  Transmission Date: 20190204
  Serious: Yes (Hospitalization)
  Sender: FDA-Public Use
  Company Number: TW-EMD SERONO-E2B_80083134

PATIENT
  Age: 57 Year
  Sex: Female
  Weight: 60 kg

DRUGS (12)
  1. TAXOL [Suspect]
     Active Substance: PACLITAXEL
     Indication: OVARIAN CANCER
     Dosage: 298 MG, Q3W
     Route: 042
     Dates: start: 20170906, end: 20170906
  2. TRAMTOR [Concomitant]
     Indication: ABDOMINAL PAIN
     Dosage: 1 DF, Q6H
     Route: 048
     Dates: start: 20170822, end: 20170905
  3. THROUGH [Concomitant]
     Indication: CONSTIPATION
     Dosage: 1 DF, QD
     Route: 048
     Dates: start: 20170907
  4. AVELUMAB [Suspect]
     Active Substance: AVELUMAB
     Indication: OVARIAN CANCER
     Dosage: 610 MG, Q3W
     Route: 042
     Dates: start: 20170906, end: 20170906
  5. PARAPLATIN [Concomitant]
     Active Substance: CARBOPLATIN
     Indication: OVARIAN CANCER
     Dosage: 450 MG, Q3W
     Route: 042
     Dates: start: 20170906
  6. MAGNESIUM OXIDE/MAGNESIUM OXIDE [Concomitant]
     Indication: CONSTIPATION
     Dosage: 2 DF, TID
     Route: 048
     Dates: start: 20170824
  7. GASLAN [Concomitant]
     Indication: ABDOMINAL DISTENSION
     Dosage: 1 DF, QID
     Route: 048
     Dates: start: 20170828, end: 20170905
  8. NORVASC [Concomitant]
     Active Substance: AMLODIPINE BESYLATE
     Indication: HYPERTENSION
     Dosage: 1 DF, QD
     Route: 048
     Dates: start: 20170822, end: 20170905
  9. BEESIX [Concomitant]
     Indication: NUTRITIONAL SUPPLEMENTATION
     Dosage: 1 DF, TID
     Route: 048
     Dates: start: 20170907, end: 20171109
  10. NIFEDIPINE. [Concomitant]
     Active Substance: NIFEDIPINE
     Indication: HYPERTENSION
     Dosage: 1 DF, STAT
     Route: 048
     Dates: start: 20170907, end: 20170907
  11. TAKEPRON [Concomitant]
     Active Substance: LANSOPRAZOLE
     Indication: PROPHYLAXIS
     Dosage: 1 DF, QD
     Route: 048
     Dates: start: 20170828, end: 20170905
  12. CEFADROXIL. [Concomitant]
     Active Substance: CEFADROXIL
     Indication: URINARY TRACT INFECTION
     Dosage: 1 DF, Q12H
     Route: 048
     Dates: start: 20170907, end: 20170909

REACTIONS (1)
  - Drug eruption [Recovered/Resolved]

NARRATIVE: CASE EVENT DATE: 20170912
